FAERS Safety Report 7639930-6 (Version None)
Quarter: 2011Q3

REPORT INFORMATION
  Report Type: 
  Country: None (occurrence: None)
  Receive Date: 20110727
  Receipt Date: 20110721
  Transmission Date: 20111222
  Serious: Yes (Other)
  Sender: FDA-Public Use
  Company Number: GB-ABBOTT-11P-167-0734975-00

PATIENT
  Sex: Female
  Weight: 93.2 kg

DRUGS (3)
  1. ABACAVIR [Concomitant]
     Indication: PRODUCT USED FOR UNKNOWN INDICATION
     Route: 048
     Dates: start: 20050809
  2. KALETRA [Suspect]
     Indication: HIV INFECTION
     Dates: start: 20050809
  3. TENOFOVIR DISOPROXIL FUMARATE [Concomitant]
     Indication: PRODUCT USED FOR UNKNOWN INDICATION
     Route: 048
     Dates: start: 20050809

REACTIONS (1)
  - INTRA-UTERINE DEATH [None]
